FAERS Safety Report 4819222-0 (Version None)
Quarter: 2005Q4

REPORT INFORMATION
  Report Type: 
  Country: None (occurrence: None)
  Receive Date: 20051103
  Receipt Date: 20051031
  Transmission Date: 20060501
  Serious: Yes (Hospitalization)
  Sender: FDA-Public Use
  Company Number: 2005021735

PATIENT
  Age: 21 Year
  Sex: Male
  Weight: 80 kg

DRUGS (4)
  1. LAMICTAL [Suspect]
     Dosage: 4500MG SINGLE DOSE
     Route: 048
     Dates: start: 20051030, end: 20051030
  2. LUMINAL [Suspect]
     Dosage: 80TAB SINGLE DOSE
     Route: 048
     Dates: start: 20051030, end: 20051030
  3. METHIONINE [Suspect]
     Dosage: 3500MG SINGLE DOSE
     Route: 048
     Dates: start: 20051030, end: 20051030
  4. PHENHYDAN [Suspect]
     Dosage: 2000MG SINGLE DOSE
     Route: 048
     Dates: start: 20051030, end: 20051030

REACTIONS (7)
  - DISTURBANCE IN ATTENTION [None]
  - INTENTIONAL DRUG MISUSE [None]
  - OVERDOSE [None]
  - SUICIDE ATTEMPT [None]
  - TACHYCARDIA [None]
  - VISUAL DISTURBANCE [None]
  - VOMITING [None]
